FAERS Safety Report 17847285 (Version 1)
Quarter: 2020Q2

REPORT INFORMATION
  Report Type: Report from Study
  Country: BR (occurrence: BR)
  Receive Date: 20200601
  Receipt Date: 20200601
  Transmission Date: 20200714
  Serious: Yes (Death, Hospitalization, Other)
  Sender: FDA-Public Use
  Company Number: NVSC2020BR083418

PATIENT
  Age: 59 Year
  Sex: Male
  Weight: 68 kg

DRUGS (4)
  1. VOTRIENT [Suspect]
     Active Substance: PAZOPANIB HYDROCHLORIDE
     Dosage: 2 DF, QD
     Route: 065
     Dates: start: 20200326
  2. VOTRIENT [Suspect]
     Active Substance: PAZOPANIB HYDROCHLORIDE
     Dosage: 2 DF, QD(2 TABLETS OF 400MG)
     Route: 065
     Dates: start: 202003
  3. VOTRIENT [Suspect]
     Active Substance: PAZOPANIB HYDROCHLORIDE
     Indication: METASTATIC RENAL CELL CARCINOMA
     Dosage: 1 DF, QD
     Route: 065
     Dates: start: 20200316, end: 20200316
  4. VOTRIENT [Suspect]
     Active Substance: PAZOPANIB HYDROCHLORIDE
     Dosage: UNK(DURING ONE MONTH AND DURING ONE MONTH AND HALT APPROXIMATELY)
     Route: 065
     Dates: start: 202003

REACTIONS (16)
  - Dizziness [Recovering/Resolving]
  - Asthenia [Recovering/Resolving]
  - Joint dislocation [Unknown]
  - Renal mass [Unknown]
  - Pulmonary embolism [Fatal]
  - Bone pain [Unknown]
  - Metastatic renal cell carcinoma [Not Recovered/Not Resolved]
  - Malignant neoplasm progression [Not Recovered/Not Resolved]
  - Ageusia [Unknown]
  - Malaise [Unknown]
  - Drug ineffective [Not Recovered/Not Resolved]
  - Inappropriate schedule of product administration [Unknown]
  - Decreased appetite [Unknown]
  - Platelet count decreased [Unknown]
  - Nausea [Unknown]
  - Wound [Unknown]

NARRATIVE: CASE EVENT DATE: 20200316
